APPROVED DRUG PRODUCT: URECHOLINE
Active Ingredient: BETHANECHOL CHLORIDE
Strength: 50MG
Dosage Form/Route: TABLET;ORAL
Application: A089096 | Product #001
Applicant: ODYSSEY PHARMACEUTICALS INC
Approved: Dec 19, 1985 | RLD: No | RS: No | Type: DISCN